FAERS Safety Report 8553667-0 (Version None)
Quarter: 2012Q3

REPORT INFORMATION
  Report Type: 
  Country: None (occurrence: None)
  Receive Date: 20120731
  Receipt Date: 20071022
  Transmission Date: 20120928
  Serious: Yes (Other)
  Sender: FDA-Public Use
  Company Number: CO-PFIZER INC-2012180984

PATIENT
  Age: 63 Year
  Sex: Female

DRUGS (7)
  1. QUINAPRIL AND HYDROCHLOROTHIAZIDE [Suspect]
     Indication: HYPERTENSION
     Dosage: 1 DF, 1X/DAY
  2. LIPITOR [Suspect]
     Indication: DYSLIPIDAEMIA
     Dosage: 1 DF, 1X/DAY
  3. METOPROLOL TARTRATE [Concomitant]
     Dosage: 1 DF, 2X/DAY
  4. INSULIN ZINC SUSPENSION [Concomitant]
     Dosage: 1 DF, 1X/DAY
  5. OMEPRAZOLE [Concomitant]
     Dosage: 1 DF, 1X/DAY
  6. METFORMIN [Concomitant]
     Dosage: 1 DF, 3X/DAY
  7. ACETYLSALICYLIC ACID [Concomitant]
     Dosage: 1 DF, 1X/DAY

REACTIONS (3)
  - CHEST PAIN [None]
  - VENTRICULAR TACHYCARDIA [None]
  - CARDIAC MURMUR [None]
